FAERS Safety Report 8784949 (Version 1)
Quarter: 2012Q4

REPORT INFORMATION
  Report Type: 
  Country: CN (occurrence: CN)
  Receive Date: 20120914
  Receipt Date: 20120914
  Transmission Date: 20130627
  Serious: Yes (Hospitalization)
  Sender: FDA-Public Use
  Company Number: CN-JNJFOC-20120906479

PATIENT
  Age: 52 Year
  Sex: Male

DRUGS (3)
  1. XARELTO [Suspect]
     Indication: PRODUCT USED FOR UNKNOWN INDICATION
     Route: 048
     Dates: start: 20120619, end: 20120702
  2. DEXTRAN [Concomitant]
  3. HERBAL PREPARATION [Concomitant]

REACTIONS (2)
  - Platelet count decreased [Recovered/Resolved]
  - Gingival bleeding [Unknown]
